FAERS Safety Report 5880141-2 (Version None)
Quarter: 2008Q3

REPORT INFORMATION
  Report Type: 
  Country: None (occurrence: None)
  Receive Date: 20080912
  Receipt Date: 20080901
  Transmission Date: 20090109
  Serious: Yes (Other)
  Sender: FDA-Public Use
  Company Number: JP-PFIZER INC-2008073046

PATIENT

DRUGS (2)
  1. ZYVOX [Suspect]
     Route: 042
  2. WARFARIN SODIUM [Concomitant]
     Route: 048

REACTIONS (1)
  - PROTHROMBIN TIME PROLONGED [None]
